FAERS Safety Report 10452256 (Version 1)
Quarter: 2014Q3

REPORT INFORMATION
  Report Type: Spontaneous
  Country: FR (occurrence: FR)
  Receive Date: 20140915
  Receipt Date: 20140915
  Transmission Date: 20150326
  Serious: Yes (Hospitalization)
  Sender: FDA-Public Use
  Company Number: FR-JNJFOC-20140901213

PATIENT
  Age: 2 Year
  Sex: Male

DRUGS (1)
  1. RISPERDAL [Suspect]
     Active Substance: RISPERIDONE
     Indication: PRODUCT USED FOR UNKNOWN INDICATION
     Route: 048
     Dates: start: 20140814, end: 20140814

REACTIONS (7)
  - Fall [Recovered/Resolved]
  - VIIth nerve paralysis [Recovered/Resolved]
  - Hypertonia [Recovered/Resolved]
  - Agitation [Unknown]
  - Salivary hypersecretion [Unknown]
  - Poisoning [Unknown]
  - Abnormal behaviour [Unknown]

NARRATIVE: CASE EVENT DATE: 20140814
